FAERS Safety Report 7300993-9 (Version None)
Quarter: 2011Q1

REPORT INFORMATION
  Report Type: 
  Country: None (occurrence: None)
  Receive Date: 20110218
  Receipt Date: 20110209
  Transmission Date: 20110831
  Serious: Yes (Hospitalization, Other)
  Sender: FDA-Public Use
  Company Number: US-BAXTER-2011BH003277

PATIENT
  Age: 63 Year
  Sex: Male

DRUGS (1)
  1. DIANEAL [Suspect]
     Indication: PERITONEAL DIALYSIS
     Route: 033
     Dates: start: 20101004

REACTIONS (3)
  - PERITONITIS [None]
  - PERITONEAL DIALYSIS COMPLICATION [None]
  - GASTROINTESTINAL DISORDER [None]
